FAERS Safety Report 14545721 (Version 1)
Quarter: 2018Q1

REPORT INFORMATION
  Report Type: Spontaneous
  Country: US (occurrence: US)
  Receive Date: 20180219
  Receipt Date: 20180219
  Transmission Date: 20180509
  Serious: Yes (Other)
  Sender: FDA-Public Use
  Company Number: US-LUPIN PHARMACEUTICALS INC.-2017-06757

PATIENT

DRUGS (1)
  1. FENOFIBRATE TABLETS USP 145 MG [Suspect]
     Active Substance: FENOFIBRATE
     Indication: RHEUMATOID ARTHRITIS
     Dosage: 145 MG, QD
     Route: 048
     Dates: start: 20170816

REACTIONS (1)
  - Hepatic enzyme increased [Unknown]
